FAERS Safety Report 10038628 (Version 1)
Quarter: 2014Q1

REPORT INFORMATION
  Report Type: Spontaneous
  Country: US (occurrence: None)
  Receive Date: 20140306
  Receipt Date: 20140306
  Transmission Date: 20141002
  Serious: Yes (Hospitalization)
  Sender: FDA-Public Use
  Company Number: 163-21880-13073630

PATIENT
  Age: 80 Year
  Sex: Female
  Weight: 66.68 kg

DRUGS (4)
  1. REVLIMID (LENALIDOMIDE) (10 MILLIGRAM, CAPSULES) [Suspect]
     Indication: B-CELL LYMPHOMA
     Route: 048
     Dates: start: 20130617, end: 20130707
  2. ENALAPRIL (ENALAPRIL) [Concomitant]
  3. FERROUS SULFATE (FERROUS SULFATE) [Concomitant]
  4. ALPROZOLAM (ALPRAZOLAM) [Concomitant]

REACTIONS (4)
  - Nausea [None]
  - Vomiting [None]
  - Chest pain [None]
  - Asthenia [None]
